FAERS Safety Report 6321552-0 (Version None)
Quarter: 2009Q3

REPORT INFORMATION
  Report Type: 
  Country: None (occurrence: None)
  Receive Date: 20090821
  Receipt Date: 20090821
  Transmission Date: 20100115
  Serious: Yes (Other)
  Sender: FDA-Public Use
  Company Number: None

PATIENT
  Age: 60 Year
  Sex: Female

DRUGS (3)
  1. GAMMAGARD S/D [Suspect]
  2. PREMARIN [Concomitant]
  3. SYNTHROID [Concomitant]

REACTIONS (1)
  - PAIN IN EXTREMITY [None]
